FAERS Safety Report 7408925-X (Version None)
Quarter: 2011Q2

REPORT INFORMATION
  Report Type: 
  Country: None (occurrence: None)
  Receive Date: 20110412
  Receipt Date: 20110408
  Transmission Date: 20111010
  Serious: Yes (Death)
  Sender: FDA-Public Use
  Company Number: US-ASTRAZENECA-2011SE19980

PATIENT
  Age: 24 Year
  Sex: Male
  Weight: 72.6 kg

DRUGS (2)
  1. DEPAKOTE [Concomitant]
  2. SEROQUEL XR [Suspect]
     Indication: BIPOLAR DISORDER
     Route: 048
     Dates: start: 20090101, end: 20110301

REACTIONS (2)
  - CARDIO-RESPIRATORY DISTRESS [None]
  - CONVULSION [None]
